FAERS Safety Report 15822516 (Version 2)
Quarter: 2024Q3

REPORT INFORMATION
  Report Type: Report from Study
  Country: FR (occurrence: FR)
  Receive Date: 20190114
  Receipt Date: 20240715
  Transmission Date: 20241017
  Serious: Yes (Death, Hospitalization, Other)
  Sender: PFIZER
  Company Number: FR-TAKEDA-2017MPI001626

PATIENT
  Age: 51 Year
  Sex: Female
  Weight: 94 kg

DRUGS (14)
  1. LEUCOVORIN CALCIUM [Suspect]
     Active Substance: LEUCOVORIN CALCIUM
     Dosage: 75 MG, WEEKLY/3/WEEK
     Route: 048
  2. VENLAFAXINE HCL [Suspect]
     Active Substance: VENLAFAXINE HYDROCHLORIDE
     Indication: Allogenic stem cell transplantation
     Dosage: 75 MG, 1X/DAY
     Route: 048
  3. RUXOLITINIB [Suspect]
     Active Substance: RUXOLITINIB
     Indication: Allogenic stem cell transplantation
     Dosage: 20 MG, 1X/DAY
     Route: 048
  4. BRENTUXIMAB VEDOTIN [Suspect]
     Active Substance: BRENTUXIMAB VEDOTIN
     Indication: Hodgkin^s disease
     Dosage: 162 MG, UNK
     Route: 065
     Dates: start: 20170213
  5. BRENTUXIMAB VEDOTIN [Suspect]
     Active Substance: BRENTUXIMAB VEDOTIN
     Dosage: 163 MG, UNK
     Route: 065
     Dates: start: 20170123
  6. BRENTUXIMAB VEDOTIN [Suspect]
     Active Substance: BRENTUXIMAB VEDOTIN
     Dosage: 103 MG, UNK
     Route: 065
     Dates: start: 20170515, end: 20170515
  7. BRENTUXIMAB VEDOTIN [Suspect]
     Active Substance: BRENTUXIMAB VEDOTIN
     Dosage: 169 MG, UNK
     Route: 065
     Dates: start: 20161212
  8. BRENTUXIMAB VEDOTIN [Suspect]
     Active Substance: BRENTUXIMAB VEDOTIN
     Dosage: 167 MG, UNK
     Route: 065
     Dates: start: 20170102
  9. BRENTUXIMAB VEDOTIN [Suspect]
     Active Substance: BRENTUXIMAB VEDOTIN
     Dosage: 158 MG, UNK
     Route: 065
     Dates: start: 20170330
  10. PENICILLIN V [Suspect]
     Active Substance: PENICILLIN V
     Indication: Allogenic stem cell transplantation
     Dosage: UNK
     Route: 048
  11. BACTRIM [Suspect]
     Active Substance: SULFAMETHOXAZOLE\TRIMETHOPRIM
     Indication: Allogenic stem cell transplantation
     Dosage: UNK UNK, 3/WEEK
     Route: 048
  12. VALACYCLOVIR HYDROCHLORIDE [Suspect]
     Active Substance: VALACYCLOVIR HYDROCHLORIDE
     Indication: Allogenic stem cell transplantation
     Dosage: 1 G, 1X/DAY
     Route: 048
  13. PREDNISONE [Suspect]
     Active Substance: PREDNISONE
     Indication: Allogenic stem cell transplantation
     Dosage: 22.5 MG, 1X/DAY
     Route: 048
  14. CYCLOSPORINE [Suspect]
     Active Substance: CYCLOSPORINE
     Indication: Allogenic stem cell transplantation
     Dosage: 60 MG, 1X/DAY
     Route: 048

REACTIONS (18)
  - Cardio-respiratory arrest [Fatal]
  - Progressive multifocal leukoencephalopathy [Fatal]
  - Neuropathy peripheral [Recovered/Resolved]
  - Escherichia pyelonephritis [Not Recovered/Not Resolved]
  - Disturbance in attention [Unknown]
  - Behaviour disorder [Unknown]
  - Aspartate aminotransferase abnormal [Not Recovered/Not Resolved]
  - Laryngeal dyspnoea [Unknown]
  - Vomiting [Recovered/Resolved]
  - Weight decreased [Unknown]
  - Off label use [Unknown]
  - Respiratory depression [Unknown]
  - Alanine aminotransferase abnormal [Not Recovered/Not Resolved]
  - Acute kidney injury [Not Recovered/Not Resolved]
  - Fatigue [Recovered/Resolved]
  - Gamma-glutamyltransferase abnormal [Not Recovered/Not Resolved]
  - Nausea [Recovered/Resolved]
  - Thrombocytopenia [Not Recovered/Not Resolved]

NARRATIVE: CASE EVENT DATE: 20161201
